FAERS Safety Report 15290455 (Version 2)
Quarter: 2018Q3

REPORT INFORMATION
  Report Type: Spontaneous
  Country: US (occurrence: US)
  Receive Date: 20180817
  Receipt Date: 20180924
  Transmission Date: 20181010
  Serious: Yes (Other)
  Sender: FDA-Public Use
  Company Number: US-BAYER-2018-149034

PATIENT
  Age: 19 Year
  Sex: Female

DRUGS (1)
  1. MIRENA [Suspect]
     Active Substance: LEVONORGESTREL
     Indication: INTRA-UTERINE CONTRACEPTIVE DEVICE INSERTION
     Dosage: 20 MCG/24HR, CONT
     Route: 015
     Dates: start: 20171114, end: 20180911

REACTIONS (5)
  - Genital haemorrhage [None]
  - Bacterial vaginosis [None]
  - Vaginal discharge [None]
  - Dyspareunia [None]
  - Abdominal pain lower [None]

NARRATIVE: CASE EVENT DATE: 20180420
